FAERS Safety Report 4995965-3 (Version None)
Quarter: 2006Q2

REPORT INFORMATION
  Report Type: 
  Country: None (occurrence: None)
  Receive Date: 20060508
  Receipt Date: 20051103
  Transmission Date: 20061013
  Serious: Yes (Hospitalization, Disabling)
  Sender: FDA-Public Use
  Company Number: US-MERCK-0511USA00676

PATIENT
  Age: 42 Year
  Sex: Female
  Weight: 102 kg

DRUGS (17)
  1. PROCARDIA [Concomitant]
     Route: 065
  2. ZELNORM [Concomitant]
     Route: 065
  3. [THERAPY UNSPECIFIED] [Concomitant]
     Route: 065
  4. VIOXX [Suspect]
     Indication: ARTHRALGIA
     Route: 048
     Dates: start: 20010101, end: 20040601
  5. VIOXX [Suspect]
     Indication: ARTHRITIS
     Route: 048
     Dates: start: 20010101, end: 20040601
  6. PREVPAC [Concomitant]
     Route: 065
  7. PROTONIX [Concomitant]
     Route: 065
  8. ANASPAZ [Concomitant]
     Route: 065
  9. ERYTHROMYCIN [Concomitant]
     Route: 065
  10. ZITHROMAX [Concomitant]
     Route: 065
  11. VERMOX [Concomitant]
     Route: 065
  12. TYLENOL (CAPLET) [Concomitant]
     Route: 065
  13. ADVIL [Concomitant]
     Route: 065
  14. BEXTRA [Concomitant]
     Route: 065
  15. DEMEROL [Concomitant]
     Route: 065
  16. ALLEGRA [Concomitant]
     Route: 065
  17. CELEBREX [Concomitant]
     Route: 065

REACTIONS (11)
  - ABDOMINAL PAIN UPPER [None]
  - ANGINA PECTORIS [None]
  - ARTERIOSPASM CORONARY [None]
  - ARTHROPATHY [None]
  - BACK INJURY [None]
  - BLOOD PRESSURE INCREASED [None]
  - CHEST PAIN [None]
  - DYSPNOEA EXERTIONAL [None]
  - INJURY [None]
  - JOINT INJURY [None]
  - MYOCARDIAL INFARCTION [None]
